FAERS Safety Report 8869156 (Version 1)
Quarter: 2012Q4

REPORT INFORMATION
  Report Type: Spontaneous
  Country: BG (occurrence: None)
  Receive Date: 20121024
  Receipt Date: 20121024
  Transmission Date: 20130627
  Serious: Yes (Life-Threatening, Other)
  Sender: FDA-Public Use
  Company Number: 14544778

PATIENT
  Age: 53 Year
  Sex: Female

DRUGS (2)
  1. TOPOTECAN HYDROCHLORIDE [Suspect]
     Indication: CARCINOMA UTERINE CERVIX
     Route: 041
     Dates: start: 20120904, end: 20120905
  2. CISPLATIN [Concomitant]

REACTIONS (6)
  - Dyspepsia [None]
  - Body temperature increased [None]
  - Neutropenia [None]
  - Leukopenia [None]
  - Anaemia [None]
  - Thrombocytopenia [None]
